FAERS Safety Report 7770418-8 (Version None)
Quarter: 2011Q3

REPORT INFORMATION
  Report Type: 
  Country: None (occurrence: None)
  Receive Date: 20110922
  Receipt Date: 20100826
  Transmission Date: 20111222
  Serious: No
  Sender: FDA-Public Use
  Company Number: US-ASTRAZENECA-2010SE40221

PATIENT
  Age: 53 Year
  Sex: Male

DRUGS (3)
  1. SEROQUEL [Suspect]
     Route: 048
     Dates: end: 20100820
  2. SEROQUEL [Suspect]
     Route: 048
  3. SEROQUEL [Suspect]
     Indication: SLEEP DISORDER
     Route: 048
     Dates: start: 20050101

REACTIONS (5)
  - INSOMNIA [None]
  - VISION BLURRED [None]
  - ABNORMAL DREAMS [None]
  - DRUG DOSE OMISSION [None]
  - IMPAIRED WORK ABILITY [None]
